FAERS Safety Report 22749314 (Version 7)
Quarter: 2024Q1

REPORT INFORMATION
  Report Type: Spontaneous
  Country: US (occurrence: US)
  Receive Date: 20230725
  Receipt Date: 20240301
  Transmission Date: 20240409
  Serious: Yes (Other)
  Sender: FDA-Public Use
  Company Number: US-PFIZER INC-PV202300022327

PATIENT
  Age: 69 Year
  Sex: Female

DRUGS (1)
  1. IBRANCE [Suspect]
     Active Substance: PALBOCICLIB
     Dosage: 100 MG (ONE TABLET), DAILY  21 DAYS AND IS OFF 7 DAYS
     Route: 048

REACTIONS (2)
  - Cholecystectomy [Unknown]
  - Blood test abnormal [Unknown]
